FAERS Safety Report 6207281-2 (Version None)
Quarter: 2009Q2

REPORT INFORMATION
  Report Type: 
  Country: None (occurrence: None)
  Receive Date: 20090522
  Receipt Date: 20090213
  Transmission Date: 20091009
  Serious: No
  Sender: FDA-Public Use
  Company Number: 8043060

PATIENT
  Age: 27 Year
  Sex: Female
  Weight: 70 kg

DRUGS (2)
  1. CIMZIA [Suspect]
     Indication: CROHN'S DISEASE
     Dosage: 400 MG/M SC
     Route: 058
     Dates: start: 20080804, end: 20090115
  2. AZATHIOPRINE [Concomitant]

REACTIONS (3)
  - ARTHRALGIA [None]
  - RASH [None]
  - RASH MACULAR [None]
